FAERS Safety Report 24196071 (Version 3)
Quarter: 2024Q4

REPORT INFORMATION
  Report Type: Spontaneous
  Country: US (occurrence: US)
  Receive Date: 20240809
  Receipt Date: 20241017
  Transmission Date: 20250114
  Serious: Yes (Hospitalization)
  Sender: PAREXEL
  Company Number: US-BELCHER PHARMACEUTICALS, LLC-2024US002547

PATIENT

DRUGS (1)
  1. SEMAGLUTIDE [Suspect]
     Active Substance: SEMAGLUTIDE
     Indication: Weight control
     Dosage: 5 MG/2 ML (2.5 MG/ML).
     Route: 058

REACTIONS (3)
  - Illness [Unknown]
  - Vomiting [Unknown]
  - Dehydration [Unknown]
